FAERS Safety Report 9720805 (Version 1)
Quarter: 2013Q4

REPORT INFORMATION
  Report Type: Spontaneous
  Country: US (occurrence: US)
  Receive Date: 20131129
  Receipt Date: 20131129
  Transmission Date: 20140711
  Serious: Yes (Hospitalization)
  Sender: FDA-Public Use
  Company Number: PHHY2013US138039

PATIENT
  Age: 34 Year
  Sex: Female
  Weight: 83 kg

DRUGS (13)
  1. METOPROLOL [Suspect]
     Indication: HYPERTENSION
     Dosage: 100 MG, BID
     Route: 048
     Dates: start: 20130205
  2. PROGRAF [Concomitant]
     Dosage: UNK UKN, UNK
     Dates: start: 20130716
  3. NIFEDIPINE [Concomitant]
     Dosage: UNK UKN, UNK
     Dates: start: 20130531, end: 20130729
  4. CELLCEPT [Concomitant]
     Dosage: UNK UKN, UNK
     Dates: start: 20130315
  5. CELLCEPT [Concomitant]
     Dosage: UNK UKN, UNK
     Dates: start: 20130617
  6. PREDNISONE [Concomitant]
     Dosage: UNK UKN, UNK
     Dates: start: 20130402
  7. CLONIDINE [Concomitant]
     Dosage: UNK UKN, UNK
     Dates: start: 20130208
  8. VITAMIN D3 [Concomitant]
     Dosage: UNK UKN, UNK
     Dates: start: 20130118
  9. FUROSEMIDE [Concomitant]
     Dosage: UNK UKN, UNK
     Dates: start: 20130829
  10. MAGNESIUM OXIDE [Concomitant]
     Dosage: UNK UKN, UNK
     Dates: start: 20130110
  11. MULTIVITAMINS [Concomitant]
     Dosage: UNK UKN, UNK
  12. PROTONIX [Concomitant]
     Dosage: UNK UKN, UNK
     Dates: start: 20130614
  13. SODIUM BICARBONATE [Concomitant]
     Dosage: UNK UKN, UNK

REACTIONS (1)
  - Cytomegalovirus infection [Recovering/Resolving]
